FAERS Safety Report 24929539 (Version 1)
Quarter: 2025Q1

REPORT INFORMATION
  Report Type: Spontaneous
  Country: US (occurrence: US)
  Receive Date: 20250205
  Receipt Date: 20250205
  Transmission Date: 20250409
  Serious: Yes (Other)
  Sender: BRISTOL-MYERS SQUIBB COMPANY
  Company Number: US-BRISTOL-MYERS SQUIBB COMPANY-2025-014385

PATIENT
  Age: 59 Year
  Sex: Male

DRUGS (1)
  1. DEUCRAVACITINIB [Suspect]
     Active Substance: DEUCRAVACITINIB
     Indication: Alopecia areata
     Dosage: 2 TABLETS EVERY DAY, ONE IN THE MORNING AND 1 IN THE EVENING
     Dates: start: 2023

REACTIONS (9)
  - Aspartate aminotransferase increased [Unknown]
  - Alanine aminotransferase increased [Unknown]
  - Intertrigo [Unknown]
  - Squamous cell carcinoma of skin [Unknown]
  - Blood creatinine increased [Unknown]
  - Blood uric acid increased [Unknown]
  - Eosinophil count increased [Unknown]
  - Blood urea increased [Unknown]
  - Infection [Unknown]

NARRATIVE: CASE EVENT DATE: 20231018
